FAERS Safety Report 19487783 (Version 2)
Quarter: 2021Q3

REPORT INFORMATION
  Report Type: Report from Study
  Country: US (occurrence: US)
  Receive Date: 20210702
  Receipt Date: 20210901
  Transmission Date: 20211014
  Serious: No
  Sender: FDA-Public Use
  Company Number: US-009507513-2107USA000326

PATIENT
  Sex: Female

DRUGS (1)
  1. KEYTRUDA [Suspect]
     Active Substance: PEMBROLIZUMAB
     Indication: BLADDER SQUAMOUS CELL CARCINOMA STAGE UNSPECIFIED
     Dosage: EVERY 3 WEEKS

REACTIONS (3)
  - Product use in unapproved indication [Unknown]
  - Product dose omission issue [Unknown]
  - No adverse event [Unknown]

NARRATIVE: CASE EVENT DATE: 20210826
